FAERS Safety Report 5965190-8 (Version None)
Quarter: 2008Q4

REPORT INFORMATION
  Report Type: 
  Country: None (occurrence: None)
  Receive Date: 20081125
  Receipt Date: 20081119
  Transmission Date: 20090506
  Serious: Yes (Hospitalization)
  Sender: FDA-Public Use
  Company Number: CA-ASTRAZENECA-2008UW26155

PATIENT
  Age: 60 Year
  Sex: Female

DRUGS (14)
  1. SEROQUEL XR [Suspect]
     Indication: SCHIZOPHRENIA
     Route: 048
     Dates: start: 20081012, end: 20081112
  2. SEROQUEL XR [Suspect]
     Route: 048
     Dates: start: 20081013, end: 20081013
  3. SEROQUEL XR [Suspect]
     Route: 048
     Dates: start: 20081014, end: 20081107
  4. INSULIN NOVOLIN [Concomitant]
     Indication: DIABETES MELLITUS
     Dates: start: 20040101
  5. NORVASC [Concomitant]
     Indication: HYPERTENSION
     Dates: start: 20030101
  6. ALTACE [Concomitant]
     Indication: HYPERTENSION
     Dates: start: 20070301
  7. RISPERDAL [Concomitant]
     Indication: SCHIZOPHRENIA
     Dates: start: 20070101
  8. RISPERDAL [Concomitant]
     Dates: start: 20030101, end: 20081011
  9. RISPERDAL [Concomitant]
     Dates: start: 20081012, end: 20081013
  10. RISPERDAL [Concomitant]
     Dates: start: 20081014, end: 20081015
  11. TEMAZEPAM [Concomitant]
     Indication: INSOMNIA
     Dates: start: 20030301
  12. CLONAZEPAM [Concomitant]
     Indication: INSOMNIA
     Dates: start: 20051001
  13. OMEPRAZOLE [Concomitant]
     Indication: GASTROOESOPHAGEAL REFLUX DISEASE
     Dates: start: 20071001
  14. COGENTIN [Concomitant]
     Indication: TREMOR
     Dates: start: 20080501

REACTIONS (1)
  - SCHIZOPHRENIA [None]
